FAERS Safety Report 5985553-4 (Version None)
Quarter: 2008Q4

REPORT INFORMATION
  Report Type: 
  Country: None (occurrence: None)
  Receive Date: 20081208
  Receipt Date: 20080325
  Transmission Date: 20090506
  Serious: No
  Sender: FDA-Public Use
  Company Number: US-AMGEN-KDL269916

PATIENT
  Sex: Female
  Weight: 66.3 kg

DRUGS (3)
  1. ENBREL [Suspect]
     Indication: PSORIASIS
     Route: 058
     Dates: start: 20080228, end: 20080319
  2. ASPIRIN [Concomitant]
  3. VICODIN [Concomitant]

REACTIONS (8)
  - ABNORMAL SENSATION IN EYE [None]
  - BACK PAIN [None]
  - EYE PAIN [None]
  - HEADACHE [None]
  - MUSCLE SPASMS [None]
  - MYALGIA [None]
  - PAIN IN EXTREMITY [None]
  - SENSORY DISTURBANCE [None]
